FAERS Safety Report 21562563 (Version 1)
Quarter: 2022Q4

REPORT INFORMATION
  Report Type: Spontaneous
  Country: AR (occurrence: AR)
  Receive Date: 20221107
  Receipt Date: 20221107
  Transmission Date: 20230113
  Serious: Yes (Hospitalization)
  Sender: FDA-Public Use
  Company Number: AR-ELI_LILLY_AND_COMPANY-AR202210014000

PATIENT
  Age: 42 Year
  Sex: Female

DRUGS (1)
  1. FORTEO [Suspect]
     Active Substance: TERIPARATIDE
     Indication: Osteoporosis
     Dosage: 20 UG, DAILY
     Route: 058
     Dates: start: 20221019, end: 20221024

REACTIONS (4)
  - Blood calcium decreased [Unknown]
  - Blood potassium increased [Unknown]
  - Discomfort [Unknown]
  - Headache [Unknown]

NARRATIVE: CASE EVENT DATE: 20221023
